FAERS Safety Report 8883865 (Version 1)
Quarter: 2012Q4

REPORT INFORMATION
  Report Type: 
  Country: BR (occurrence: BR)
  Receive Date: 20121102
  Receipt Date: 20121102
  Transmission Date: 20130627
  Serious: Yes (Hospitalization)
  Sender: FDA-Public Use
  Company Number: BR-ELI_LILLY_AND_COMPANY-BR201210006767

PATIENT
  Age: 40 Year
  Sex: Male
  Weight: 100 kg

DRUGS (3)
  1. FORTEO [Suspect]
     Indication: OSTEOPOROSIS
     Dosage: UNK, qd
     Route: 058
     Dates: start: 20110401
  2. FORTEO [Suspect]
     Dosage: UNK, qd
     Route: 058
     Dates: start: 20121019
  3. CAL-D [Concomitant]
     Dosage: UNK, bid
     Route: 065

REACTIONS (4)
  - Convulsion [Not Recovered/Not Resolved]
  - Aspiration [Not Recovered/Not Resolved]
  - Fibula fracture [Not Recovered/Not Resolved]
  - Ankle fracture [Not Recovered/Not Resolved]
